FAERS Safety Report 6272306-5 (Version None)
Quarter: 2009Q3

REPORT INFORMATION
  Report Type: 
  Country: None (occurrence: None)
  Receive Date: 20090713
  Receipt Date: 20090313
  Transmission Date: 20100115
  Serious: No
  Sender: FDA-Public Use
  Company Number: 2009BM000062

PATIENT
  Age: 46 Year
  Sex: Male
  Weight: 117 kg

DRUGS (1)
  1. KUVAN [Suspect]
     Indication: PHENYLKETONURIA
     Dosage: 1000 MG;BID;PO
     Route: 048
     Dates: start: 20090223, end: 20090306

REACTIONS (2)
  - FATIGUE [None]
  - TREMOR [None]
